FAERS Safety Report 13275673 (Version 1)
Quarter: 2017Q1

REPORT INFORMATION
  Report Type: Spontaneous
  Country: IT (occurrence: IT)
  Receive Date: 20170228
  Receipt Date: 20170228
  Transmission Date: 20170428
  Serious: Yes (Other)
  Sender: FDA-Public Use
  Company Number: IT-ASTRAZENECA-2017SE20421

PATIENT
  Sex: Female

DRUGS (5)
  1. PYLERA [Suspect]
     Active Substance: BISMUTH SUBCITRATE POTASSIUM\METRONIDAZOLE\TETRACYCLINE HYDROCHLORIDE
     Indication: HELICOBACTER INFECTION
     Dosage: 140 MG/125 MG/125 M, 1.17 G/DAYFOR 2 DAYS
     Route: 048
  2. AZITHROMYCIN ANHYDROUS. [Concomitant]
     Active Substance: AZITHROMYCIN ANHYDROUS
  3. BRONCOVALEAS [Concomitant]
     Active Substance: ALBUTEROL
     Route: 055
  4. TROSYD [Concomitant]
  5. ESOMEPRAZOLE [Suspect]
     Active Substance: ESOMEPRAZOLE
     Indication: HELICOBACTER INFECTION
     Dosage: FOR 2 DAYS
     Route: 048

REACTIONS (2)
  - Pruritus generalised [Recovering/Resolving]
  - Erythema [Recovering/Resolving]
